FAERS Safety Report 6448423-3 (Version None)
Quarter: 2009Q4

REPORT INFORMATION
  Report Type: 
  Country: None (occurrence: None)
  Receive Date: 20091120
  Receipt Date: 20091112
  Transmission Date: 20100525
  Serious: Yes (Hospitalization)
  Sender: FDA-Public Use
  Company Number: JP-ABBOTT-09P-087-0597940-00

PATIENT
  Age: 66 Year
  Sex: Male

DRUGS (7)
  1. HUMIRA [Suspect]
     Indication: PSORIASIS
     Route: 058
     Dates: start: 20060817, end: 20070215
  2. HUMIRA [Suspect]
     Route: 058
     Dates: start: 20070301, end: 20090827
  3. AMARYL [Concomitant]
     Indication: DIABETES MELLITUS
     Route: 048
     Dates: start: 20090312, end: 20090903
  4. NIFEDIPINE [Concomitant]
     Indication: HYPERTENSION
     Route: 048
     Dates: start: 20090115, end: 20090903
  5. OLMETEC [Concomitant]
     Indication: HYPERTENSION
     Route: 048
     Dates: start: 20071011, end: 20090903
  6. EURIMOLAN [Concomitant]
     Indication: INSOMNIA
     Route: 048
     Dates: start: 20081028, end: 20090903
  7. EURIMOLAN [Concomitant]
     Indication: PROPHYLAXIS

REACTIONS (1)
  - ANGINA PECTORIS [None]
